FAERS Safety Report 14875824 (Version 1)
Quarter: 2018Q2

REPORT INFORMATION
  Report Type: Spontaneous
  Country: CA (occurrence: CA)
  Receive Date: 20180510
  Receipt Date: 20180510
  Transmission Date: 20180711
  Serious: Yes (Hospitalization, Other)
  Sender: FDA-Public Use
  Company Number: CA-BAYER-2018-085872

PATIENT
  Age: 29 Year
  Sex: Female
  Weight: 64.4 kg

DRUGS (2)
  1. MIRENA [Suspect]
     Active Substance: LEVONORGESTREL
     Indication: CONTRACEPTION
  2. MIRENA [Suspect]
     Active Substance: LEVONORGESTREL
     Indication: CONTRACEPTION
     Dosage: 20 MCG/24HR, CONT
     Route: 015

REACTIONS (27)
  - Cortisol increased [Recovering/Resolving]
  - Acne [Recovering/Resolving]
  - Hypoaesthesia [Recovering/Resolving]
  - Infertility [Recovering/Resolving]
  - Panic attack [Recovering/Resolving]
  - Vision blurred [Recovering/Resolving]
  - Confusional state [Recovering/Resolving]
  - Fluid retention [None]
  - Weight increased [Recovering/Resolving]
  - Abdominal pain [Recovering/Resolving]
  - Drug level increased [Recovering/Resolving]
  - Intracranial pressure increased [Recovering/Resolving]
  - Polycystic ovaries [Recovering/Resolving]
  - Abdominal distension [Recovering/Resolving]
  - Anxiety [Recovering/Resolving]
  - Chest pain [None]
  - Food intolerance [Recovering/Resolving]
  - Tachycardia [Recovering/Resolving]
  - Alopecia [Recovering/Resolving]
  - Arthralgia [Recovering/Resolving]
  - Amnesia [Recovering/Resolving]
  - Amenorrhoea [Recovering/Resolving]
  - Dizziness [Recovering/Resolving]
  - Headache [Recovering/Resolving]
  - Progesterone decreased [Recovering/Resolving]
  - Back pain [Recovering/Resolving]
  - Haemangioma of liver [Recovering/Resolving]
